FAERS Safety Report 5311489-8 (Version None)
Quarter: 2007Q2

REPORT INFORMATION
  Report Type: 
  Country: None (occurrence: None)
  Receive Date: 20070426
  Receipt Date: 20070426
  Transmission Date: 20071010
  Serious: Yes (Other)
  Sender: FDA-Public Use
  Company Number: None

PATIENT
  Age: 59 Year
  Sex: Male
  Weight: 130.9 kg

DRUGS (14)
  1. ROSUVASTATIN [Suspect]
     Indication: HYPERLIPIDAEMIA
     Dosage: 10MG PO QHS
     Route: 048
     Dates: start: 20060829, end: 20060929
  2. CYCLOBENZAPRINE HCL [Concomitant]
  3. METFORMIN HCL [Concomitant]
  4. NIACIN [Concomitant]
  5. METFORMIN HCL [Concomitant]
  6. ACETAMINOPHEN [Concomitant]
  7. CLOTRIMAZOLE [Concomitant]
  8. CODEINE PHOSPHATE AND ACETAMINOPHEN [Concomitant]
  9. DIPHENHYDRAMINE HCL [Concomitant]
  10. FERROUS SULFATE TAB [Concomitant]
  11. GEMFIBROZIL [Concomitant]
  12. GLYBURIDE [Concomitant]
  13. NAPROXEN [Concomitant]
  14. OMEGA-3 FATTY ACIDS [Concomitant]

REACTIONS (2)
  - MALAISE [None]
  - NAUSEA [None]
